FAERS Safety Report 5197427-X (Version None)
Quarter: 2007Q1

REPORT INFORMATION
  Report Type: 
  Country: None (occurrence: None)
  Receive Date: 20070103
  Receipt Date: 20061227
  Transmission Date: 20070707
  Serious: Yes (Hospitalization)
  Sender: FDA-Public Use
  Company Number: JP-ABBOTT-04P-087-0280719-00

PATIENT
  Sex: Male

DRUGS (19)
  1. KALETRA [Suspect]
     Indication: HIV INFECTION
     Route: 048
     Dates: start: 20030902
  2. LAMIVUDINE [Suspect]
     Indication: HIV INFECTION
     Route: 048
     Dates: start: 20030902, end: 20050216
  3. LAMIVUDINE [Suspect]
     Route: 048
     Dates: start: 20050217
  4. STAVUDINE [Suspect]
     Indication: HIV INFECTION
     Route: 048
     Dates: start: 20030902, end: 20050602
  5. TENOFOVIR [Suspect]
     Indication: HIV INFECTION
     Route: 048
     Dates: start: 20040602
  6. FLUNITRAZEPAM [Concomitant]
     Indication: INSOMNIA
     Dates: start: 20031024
  7. LEVOMEPROMAZINE [Concomitant]
     Indication: INSOMNIA
     Dates: start: 20031024
  8. BETAMETHASONE SODIUM PHOSPHATE [Concomitant]
     Indication: CYTOMEGALOVIRUS CHORIORETINITIS
     Dosage: X 3
     Route: 050
     Dates: start: 20030902
  9. LEVOFLOXACIN [Concomitant]
     Indication: CYTOMEGALOVIRUS CHORIORETINITIS
     Route: 050
     Dates: start: 20030902, end: 20050316
  10. TROPICAMIDE [Concomitant]
     Indication: CYTOMEGALOVIRUS CHORIORETINITIS
     Dosage: X 3
     Route: 050
     Dates: start: 20030902, end: 20041102
  11. VALGANCICLOVIR HCL [Concomitant]
     Indication: CYTOMEGALOVIRUS CHORIORETINITIS
     Dates: start: 20030925, end: 20031015
  12. SULFAMETHOXAZOLE + TRIMETHOPRIM [Concomitant]
     Indication: INFECTION PROPHYLAXIS
     Dosage: X 1
     Dates: start: 20030908, end: 20040204
  13. FLUCONAZOLE [Concomitant]
     Indication: ANTIFUNGAL PROPHYLAXIS
     Dates: start: 20030823, end: 20030916
  14. FLUCONAZOLE [Concomitant]
     Dates: start: 20031016, end: 20031021
  15. MEROPENEM TRIHYDRATE [Concomitant]
     Indication: ENTEROCOLITIS
     Dates: start: 20031015, end: 20031021
  16. FAMOTIDINE [Concomitant]
     Indication: GASTRITIS EROSIVE
     Dates: start: 20031204, end: 20040407
  17. FAMOTIDINE [Concomitant]
     Indication: HIATUS HERNIA
     Route: 048
     Dates: start: 20050907
  18. IMPIRAMINE HYDROCHLORIDE [Concomitant]
     Indication: DEPRESSED MOOD
     Route: 048
     Dates: start: 20031024
  19. TANDOSPIRONE CITRATE [Concomitant]
     Indication: DEPRESSED MOOD
     Dates: start: 20031024

REACTIONS (17)
  - ABDOMINAL PAIN UPPER [None]
  - CITROBACTER INFECTION [None]
  - DEPRESSED MOOD [None]
  - DIARRHOEA [None]
  - DIZZINESS [None]
  - EROSIVE OESOPHAGITIS [None]
  - HYPERLIPIDAEMIA [None]
  - HYPOAESTHESIA [None]
  - INFECTION IN AN IMMUNOCOMPROMISED HOST [None]
  - KLEBSIELLA INFECTION [None]
  - LYMPHADENOPATHY [None]
  - NAUSEA [None]
  - PAIN IN EXTREMITY [None]
  - PYREXIA [None]
  - RETINAL DETACHMENT [None]
  - VERTIGO POSITIONAL [None]
  - WHITE BLOOD CELL COUNT DECREASED [None]
